FAERS Safety Report 4633442-X (Version None)
Quarter: 2005Q2

REPORT INFORMATION
  Report Type: 
  Country: None (occurrence: None)
  Receive Date: 20050408
  Receipt Date: 20050404
  Transmission Date: 20051028
  Serious: Yes (Other)
  Sender: FDA-Public Use
  Company Number: 2005-03-0835

PATIENT
  Age: 50 Year
  Sex: Female
  Weight: 70.3075 kg

DRUGS (7)
  1. PEG-INTRON [Suspect]
     Indication: HEPATITIS C
     Dosage: 96 MCG QW SUBCUTANEOUS
     Route: 058
     Dates: start: 20040911
  2. REBETOL [Suspect]
     Indication: HEPATITIS C
     Dosage: 1000 MG QD ORAL
     Route: 048
     Dates: start: 20040911
  3. CELEBREX [Concomitant]
  4. EFFEXOR [Concomitant]
  5. WELLBUTRIN [Concomitant]
  6. VIVELLE [Concomitant]
  7. NEXIUM [Concomitant]

REACTIONS (1)
  - BREAST CANCER FEMALE [None]
